FAERS Safety Report 14254795 (Version 2)
Quarter: 2017Q4

REPORT INFORMATION
  Report Type: Report from Study
  Country: RU (occurrence: RU)
  Receive Date: 20171206
  Receipt Date: 20171207
  Transmission Date: 20180321
  Serious: Yes (Other)
  Sender: FDA-Public Use
  Company Number: RU-TEVA-2017-RU-830218

PATIENT
  Age: 8 Year
  Sex: Male
  Weight: 22.3 kg

DRUGS (4)
  1. HOLOXANI [Suspect]
     Active Substance: IFOSFAMIDE
     Dosage: 2700 MILLIGRAM DAILY;
     Route: 042
     Dates: start: 20170306, end: 20170307
  2. ACNOMYDI (DACTINOMYCIN) [Suspect]
     Active Substance: DACTINOMYCIN
     Dosage: 1.35 MILLIGRAM DAILY;
     Route: 042
     Dates: start: 20170306, end: 20170306
  3. VINCRISTINE [Suspect]
     Active Substance: VINCRISTINE
     Dosage: 1.35 MILLIGRAM DAILY;
     Route: 042
     Dates: start: 20170306, end: 20170306
  4. LONQUEX [Suspect]
     Active Substance: LIPEGFILGRASTIM
     Indication: COLONY STIMULATING FACTOR PROPHYLAXIS
     Dosage: 2.2 MILLIGRAM DAILY; LAST DOSE PRIOR TO SAE: 20-SEP-2016
     Route: 058
     Dates: start: 20160714

REACTIONS (1)
  - Lymphopenia [Recovered/Resolved with Sequelae]

NARRATIVE: CASE EVENT DATE: 20170313
